FAERS Safety Report 6429325-5 (Version None)
Quarter: 2009Q4

REPORT INFORMATION
  Report Type: 
  Country: None (occurrence: None)
  Receive Date: 20091030
  Receipt Date: 20091019
  Transmission Date: 20100525
  Serious: Yes (Hospitalization, Other)
  Sender: FDA-Public Use
  Company Number: DSU-2009-02266

PATIENT
  Sex: Female
  Weight: 49.8957 kg

DRUGS (7)
  1. BENICAR HCT [Suspect]
     Indication: HYPERTENSION
     Dosage: (QD), PER ORAL ; (QD), PER ORAL
     Route: 048
     Dates: start: 20060101, end: 20070101
  2. BENICAR HCT [Suspect]
     Indication: HYPERTENSION
     Dosage: (QD), PER ORAL ; (QD), PER ORAL
     Route: 048
     Dates: start: 20091018, end: 20091018
  3. CODEINE SUL TAB [Concomitant]
  4. DETROL LA (TOLTERODINE) (TOLTERODINE) [Concomitant]
  5. PREMARIN (ESTROGENS CONJUGATED) (TABLET) (ESTROGENS CONJUGATED) [Concomitant]
  6. OSCAL (CALCIUM CARBONATE) (CALCIUM CARBONATE) [Concomitant]
  7. OMEGA BLEND VITAMIN (PROXYPHYLLINE, CRATAEGUS LAEVIGATA, CONVALLARIA M [Concomitant]

REACTIONS (5)
  - BLOOD PRESSURE DECREASED [None]
  - CHOLECYSTECTOMY [None]
  - COELIAC DISEASE [None]
  - MALAISE [None]
  - VOMITING [None]
